FAERS Safety Report 14562780 (Version 2)
Quarter: 2018Q1

REPORT INFORMATION
  Report Type: Spontaneous
  Country: UA (occurrence: UA)
  Receive Date: 20180222
  Receipt Date: 20180301
  Transmission Date: 20180509
  Serious: Yes (Death)
  Sender: FDA-Public Use
  Company Number: UA-BAYER-2018-033857

PATIENT
  Age: 64 Year
  Sex: Female

DRUGS (1)
  1. ULTRAVIST [Suspect]
     Active Substance: IOPROMIDE
     Indication: IMAGING PROCEDURE
     Dosage: HALF NOTE DOSE

REACTIONS (1)
  - Cardiovascular insufficiency [Fatal]

NARRATIVE: CASE EVENT DATE: 20180214
